FAERS Safety Report 7804376-4 (Version None)
Quarter: 2011Q4

REPORT INFORMATION
  Report Type: 
  Country: None (occurrence: None)
  Receive Date: 20111010
  Receipt Date: 20110927
  Transmission Date: 20120403
  Serious: Yes (Hospitalization)
  Sender: FDA-Public Use
  Company Number: US-ELI_LILLY_AND_COMPANY-US201108002775

PATIENT
  Sex: Female
  Weight: 60.771 kg

DRUGS (17)
  1. NITROSTAT [Concomitant]
     Dosage: 0.4 MG, UNK
  2. PREDNISONE [Concomitant]
     Dosage: 5 MG, UNK
  3. POTASSIUM CHLORIDE [Concomitant]
     Dosage: 10 UG, UNK
  4. LYRICA [Concomitant]
     Dosage: 100 MG, UNK
  5. ZOLPIDEM [Concomitant]
     Dosage: 5 MG, UNK
  6. PROVENTIL                               /USA/ [Concomitant]
  7. DIGOXIN [Concomitant]
     Dosage: 0.125 MG, UNK
  8. FORTEO [Suspect]
     Indication: OSTEOPOROSIS
     Dosage: 20 UG, QD
     Route: 058
     Dates: start: 20080101, end: 20090901
  9. REQUIP [Concomitant]
     Dosage: 3 MG, UNK
  10. MS CONTIN [Concomitant]
     Dosage: 30 MG, UNK
  11. CELEBREX [Concomitant]
     Dosage: 200 MG, UNK
  12. OMEPRAZOLE [Concomitant]
     Dosage: 20 MG, UNK
  13. ADVAIR DISKUS 100/50 [Concomitant]
  14. LEVOTHYROXINE SODIUM [Concomitant]
     Dosage: 75 UG, UNK
  15. COUMADIN [Concomitant]
  16. NOVOLOG [Concomitant]
  17. FORTEO [Suspect]
     Dosage: 20 UG, QD
     Route: 058
     Dates: start: 20110722

REACTIONS (9)
  - ARTHROPATHY [None]
  - MALAISE [None]
  - ASTHMA [None]
  - CERVICAL SPINAL STENOSIS [None]
  - SPINAL OSTEOARTHRITIS [None]
  - HYPERSENSITIVITY [None]
  - CERVICAL MYELOPATHY [None]
  - STAPHYLOCOCCAL INFECTION [None]
  - DIABETES MELLITUS [None]
